FAERS Safety Report 9511701 (Version 1)
Quarter: 2013Q1

REPORT INFORMATION
  Report Type: Spontaneous
  Country: US (occurrence: None)
  Receive Date: 20130305
  Receipt Date: 20130305
  Transmission Date: 20140127
  Serious: Yes (Other)
  Sender: FDA-Public Use
  Company Number: 163-21880-12103440

PATIENT
  Age: 70 Year
  Sex: Male
  Weight: 69.4 kg

DRUGS (9)
  1. REVLIMID [Suspect]
     Indication: PLASMA CELL MYELOMA
     Dosage: 10 MG, 21 IN 28 D, PO?
     Route: 048
     Dates: start: 20121004
  2. AREDIA (PAMIDRONATE DISODIUM) (UNKNOWN) [Concomitant]
  3. CALCIUM (CALCIUM) (UNKNOWN) [Concomitant]
  4. DEXAMETHASONE (DEXAMETHASONE) (UNKNOWN) [Concomitant]
  5. LISINOPRIL (LISINOPRIL) (UNKNOWN) [Concomitant]
  6. OMEGA 3 (FISH OIL) (UNKNOWN) [Concomitant]
  7. ONDANSETRON (ONDANSETRON) (UNKNOWN) [Concomitant]
  8. SIMVASTATIN [Concomitant]
  9. WARFARIN (WARFARIN) (UNKNOWN) [Concomitant]

REACTIONS (2)
  - Weight decreased [None]
  - Decreased appetite [None]
